FAERS Safety Report 6873992-9 (Version None)
Quarter: 2010Q3

REPORT INFORMATION
  Report Type: 
  Country: None (occurrence: None)
  Receive Date: 20100723
  Receipt Date: 20090404
  Transmission Date: 20110219
  Serious: No
  Sender: FDA-Public Use
  Company Number: US-PFIZER INC-2009197766

PATIENT
  Sex: Female
  Weight: 56.699 kg

DRUGS (2)
  1. CHANTIX [Suspect]
     Indication: SMOKING CESSATION THERAPY
     Dosage: 0.5 MG, 1X/DAY
     Dates: start: 20090401, end: 20090404
  2. XANAX [Concomitant]
     Dosage: UNK

REACTIONS (4)
  - ANXIETY [None]
  - BACK PAIN [None]
  - BEDRIDDEN [None]
  - DYSPNOEA [None]
